FAERS Safety Report 23023844 (Version 1)
Quarter: 2023Q4

REPORT INFORMATION
  Report Type: Spontaneous
  Country: US (occurrence: US)
  Receive Date: 20231003
  Receipt Date: 20231003
  Transmission Date: 20240109
  Serious: Yes (Hospitalization, Other)
  Sender: FDA-Public Use
  Company Number: US-BRISTOL-MYERS SQUIBB COMPANY-2023-136285

PATIENT
  Age: 77 Year
  Sex: Male

DRUGS (1)
  1. POMALYST [Suspect]
     Active Substance: POMALIDOMIDE
     Indication: Plasma cell myeloma
     Dosage: TAKE 1 CAPSULE BY MOUTH ONCE DAILY FOR 21DAYS ON AND 7 DAYS OFF
     Route: 048
     Dates: start: 202308

REACTIONS (4)
  - Dizziness [Unknown]
  - Diplopia [Unknown]
  - Sepsis [Unknown]
  - Alpha haemolytic streptococcal infection [Unknown]

NARRATIVE: CASE EVENT DATE: 20230101
